FAERS Safety Report 10557903 (Version 3)
Quarter: 2014Q4

REPORT INFORMATION
  Report Type: Spontaneous
  Country: JP (occurrence: JP)
  Receive Date: 20141031
  Receipt Date: 20141212
  Transmission Date: 20150529
  Serious: Yes (Other)
  Sender: FDA-Public Use
  Company Number: JP-PFIZER INC-2014297543

PATIENT
  Age: 82 Year
  Sex: Male

DRUGS (4)
  1. XALATAN [Suspect]
     Active Substance: LATANOPROST
     Indication: GLAUCOMA
     Dosage: 1 DROP ONCE DAILY
     Route: 047
     Dates: start: 20140722, end: 20140826
  2. HYALEIN [Suspect]
     Active Substance: HYALURONATE SODIUM
     Indication: DRY EYE
     Dosage: 1 DROP, 3 OR 4 TIMES PER DAY
     Route: 047
     Dates: start: 20120723
  3. METHYCOBAL [Concomitant]
     Active Substance: METHYLCOBALAMIN
     Dosage: 500 MICROG, 2X/DAY
     Route: 048
     Dates: start: 20131216
  4. METHYCOBAL [Concomitant]
     Active Substance: METHYLCOBALAMIN
     Indication: OPTIC ISCHAEMIC NEUROPATHY
     Dosage: 500 MICROG, 3X/DAY
     Route: 048
     Dates: start: 20120723, end: 20131215

REACTIONS (4)
  - Diplopia [Not Recovered/Not Resolved]
  - Corneal opacity [Not Recovered/Not Resolved]
  - Visual acuity reduced [Not Recovered/Not Resolved]
  - Astigmatism [Not Recovered/Not Resolved]

NARRATIVE: CASE EVENT DATE: 20140826
